FAERS Safety Report 15660754 (Version 1)
Quarter: 2018Q4

REPORT INFORMATION
  Report Type: Report from Study
  Country: None (occurrence: DE)
  Receive Date: 20181127
  Receipt Date: 20181127
  Transmission Date: 20190205
  Serious: Yes (Other)
  Sender: FDA-Public Use
  Company Number: DE-ABBVIE-18K-062-2568167-00

PATIENT
  Sex: Female

DRUGS (1)
  1. HUMIRA [Suspect]
     Active Substance: ADALIMUMAB
     Indication: RHEUMATOID ARTHRITIS
     Route: 058
     Dates: start: 20181016, end: 2018

REACTIONS (17)
  - Asthenopia [Unknown]
  - Diarrhoea [Unknown]
  - Nausea [Unknown]
  - Deafness [Unknown]
  - Dizziness [Unknown]
  - Restlessness [Unknown]
  - Nail disorder [Unknown]
  - Numb chin syndrome [Recovered/Resolved]
  - Feeling hot [Unknown]
  - Chest discomfort [Unknown]
  - Erythema [Unknown]
  - Tachycardia [Unknown]
  - Hypoaesthesia oral [Recovered/Resolved]
  - Insomnia [Unknown]
  - Tinnitus [Unknown]
  - Dysarthria [Unknown]
  - Onychoclasis [Unknown]

NARRATIVE: CASE EVENT DATE: 2018
